FAERS Safety Report 10268757 (Version 1)
Quarter: 2014Q2

REPORT INFORMATION
  Report Type: Spontaneous
  Country: DE (occurrence: DE)
  Receive Date: 20140630
  Receipt Date: 20140630
  Transmission Date: 20141212
  Serious: Yes (Other)
  Sender: FDA-Public Use
  Company Number: DE-WATSON-2014-13845

PATIENT
  Age: 3 Month
  Sex: Female
  Weight: 3.5 kg

DRUGS (1)
  1. CITALOPRAM (UNKNOWN) [Suspect]
     Indication: DEPRESSION
     Dosage: 10 MG, DAILY
     Route: 064
     Dates: end: 20140523

REACTIONS (3)
  - Feeding disorder neonatal [Recovered/Resolved]
  - Weight gain poor [Recovered/Resolved]
  - Foetal exposure during pregnancy [Recovered/Resolved]
